FAERS Safety Report 25886629 (Version 1)
Quarter: 2025Q4

REPORT INFORMATION
  Report Type: Spontaneous
  Country: RU (occurrence: RU)
  Receive Date: 20251006
  Receipt Date: 20251006
  Transmission Date: 20260117
  Serious: Yes (Other)
  Sender: ORGANON
  Company Number: RU-BAYER-2025A130807

PATIENT
  Sex: Male

DRUGS (1)
  1. EBASTINE [Suspect]
     Active Substance: EBASTINE
     Dosage: UNK

REACTIONS (3)
  - Coeliac disease [Not Recovered/Not Resolved]
  - Contraindicated product prescribed [Unknown]
  - Product colour issue [Unknown]
